FAERS Safety Report 7458242-7 (Version None)
Quarter: 2011Q2

REPORT INFORMATION
  Report Type: 
  Country: None (occurrence: None)
  Receive Date: 20110504
  Receipt Date: 20110427
  Transmission Date: 20111010
  Serious: Yes (Hospitalization, Disabling, Other)
  Sender: FDA-Public Use
  Company Number: US-MERCK-1006USA03204

PATIENT
  Age: 73 Year
  Sex: Female

DRUGS (4)
  1. FOSAMAX [Suspect]
     Indication: OSTEOPENIA
     Route: 048
     Dates: start: 20021009, end: 20091120
  2. FOSAMAX [Suspect]
     Indication: OSTEOPOROSIS
     Route: 048
     Dates: start: 20021009, end: 20091120
  3. FOSAMAX [Suspect]
     Route: 048
     Dates: start: 20080301, end: 20091101
  4. OS-CAL + D [Concomitant]
     Route: 065
     Dates: start: 19970101

REACTIONS (18)
  - ATAXIA [None]
  - RHINITIS PERENNIAL [None]
  - FEMUR FRACTURE [None]
  - NOCTURIA [None]
  - SKIN INJURY [None]
  - CONTUSION [None]
  - LOW TURNOVER OSTEOPATHY [None]
  - LUMBAR RADICULOPATHY [None]
  - ELECTROCARDIOGRAM ABNORMAL [None]
  - OSTEOARTHRITIS [None]
  - HYPERTONIC BLADDER [None]
  - INTERVERTEBRAL DISC DEGENERATION [None]
  - HYPERCHOLESTEROLAEMIA [None]
  - OSTEOPOROSIS [None]
  - STRESS FRACTURE [None]
  - DIVERTICULUM [None]
  - BREAST CANCER [None]
  - BURSITIS [None]
